FAERS Safety Report 5138303-8 (Version None)
Quarter: 2006Q4

REPORT INFORMATION
  Report Type: 
  Country: None (occurrence: None)
  Receive Date: 20061030
  Receipt Date: 20060817
  Transmission Date: 20070319
  Serious: No
  Sender: FDA-Public Use
  Company Number: 57976

PATIENT

DRUGS (2)
  1. ADVAIR HFA [Suspect]
     Indication: MEDICATION ERROR
     Route: 065
  2. ADVICOR [Suspect]
     Indication: DRUG USE FOR UNKNOWN INDICATION
     Route: 065

REACTIONS (1)
  - MEDICATION ERROR [None]
